FAERS Safety Report 22620495 (Version 1)
Quarter: 2023Q2

REPORT INFORMATION
  Report Type: Report from Study
  Country: AU (occurrence: AU)
  Receive Date: 20230620
  Receipt Date: 20230620
  Transmission Date: 20230722
  Serious: Yes (Hospitalization)
  Sender: FDA-Public Use
  Company Number: AU-MYLANLABS-2023M1064157

PATIENT
  Age: 61 Year

DRUGS (5)
  1. ADALIMUMAB [Suspect]
     Active Substance: ADALIMUMAB
     Indication: Toxic epidermal necrolysis
     Dosage: 80 MILLIGRAM (ON DAY 6 OF THE HOSPITAL ADMISSION)
     Route: 058
  2. CEFAZOLIN [Suspect]
     Active Substance: CEFAZOLIN
     Indication: Product used for unknown indication
     Dosage: UNK
     Route: 065
  3. FLUCLOXACILLIN [Suspect]
     Active Substance: FLUCLOXACILLIN
     Indication: Product used for unknown indication
     Dosage: UNK
     Route: 065
  4. PEMBROLIZUMAB [Suspect]
     Active Substance: PEMBROLIZUMAB
     Indication: Product used for unknown indication
     Dosage: UNK
     Route: 065
  5. PREDNISONE [Concomitant]
     Active Substance: PREDNISONE
     Indication: Toxic epidermal necrolysis
     Dosage: 1 MILLIGRAM/KILOGRAM, QD
     Route: 048

REACTIONS (3)
  - Toxic epidermal necrolysis [Recovered/Resolved]
  - Conjunctivitis [Recovered/Resolved]
  - Off label use [Recovered/Resolved]
